FAERS Safety Report 9664533 (Version 1)
Quarter: 2013Q4

REPORT INFORMATION
  Report Type: Spontaneous
  Country: US (occurrence: None)
  Receive Date: 20131030
  Receipt Date: 20131030
  Transmission Date: 20140711
  Serious: Yes (Other)
  Sender: FDA-Public Use
  Company Number: None

PATIENT
  Age: 32 Year
  Sex: Female
  Weight: 108.41 kg

DRUGS (2)
  1. VALTREX [Suspect]
     Indication: GENITAL HERPES
     Dates: start: 201104, end: 201108
  2. VALTREX [Suspect]
     Indication: GENITAL HERPES
     Dates: start: 201108, end: 201109

REACTIONS (2)
  - Product substitution issue [None]
  - Therapeutic response unexpected with drug substitution [None]
